FAERS Safety Report 8576352-8 (Version None)
Quarter: 2012Q3

REPORT INFORMATION
  Report Type: 
  Country: None (occurrence: None)
  Receive Date: 20120807
  Receipt Date: 20120801
  Transmission Date: 20120928
  Serious: Yes (Death)
  Sender: FDA-Public Use
  Company Number: US-ROCHE-1096486

PATIENT
  Sex: Female

DRUGS (1)
  1. XELODA [Suspect]
     Indication: BREAST CANCER METASTATIC
     Route: 048
     Dates: start: 20120416

REACTIONS (5)
  - ASTHENIA [None]
  - INSOMNIA [None]
  - OEDEMA PERIPHERAL [None]
  - DEATH [None]
  - VOMITING [None]
